FAERS Safety Report 24942608 (Version 2)
Quarter: 2025Q1

REPORT INFORMATION
  Report Type: Spontaneous
  Country: SE (occurrence: SE)
  Receive Date: 20250207
  Receipt Date: 20250212
  Transmission Date: 20250409
  Serious: Yes (Hospitalization, Other)
  Sender: DAIICHI
  Company Number: SE-MYLANLABS-2025M1004270

PATIENT
  Age: 86 Year
  Sex: Male

DRUGS (24)
  1. EDOXABAN TOSYLATE [Suspect]
     Active Substance: EDOXABAN TOSYLATE
     Indication: Product used for unknown indication
     Route: 065
  2. METOPROLOL [Suspect]
     Active Substance: METOPROLOL
     Indication: Product used for unknown indication
     Route: 065
  3. DAPAGLIFLOZIN [Suspect]
     Active Substance: DAPAGLIFLOZIN
     Indication: Cardiac failure
     Route: 065
  4. DAPAGLIFLOZIN [Suspect]
     Active Substance: DAPAGLIFLOZIN
     Route: 065
  5. CALCIUM CARBONATE [Suspect]
     Active Substance: CALCIUM CARBONATE
     Indication: Calcium deficiency
     Dosage: 2 DOSAGE FORM, QD
     Route: 065
  6. CALCIUM CARBONATE [Suspect]
     Active Substance: CALCIUM CARBONATE
     Indication: Muscle spasms
     Dosage: 2 DOSAGE FORM, TID (START DATE: 07-JAN-2025, KALCIPOS TO 6 TABLETS, 2  TABLETS 3 TIMES A DAY)
     Route: 065
     Dates: end: 20250112
  7. CALCIUM CARBONATE [Suspect]
     Active Substance: CALCIUM CARBONATE
     Dosage: 2 DOSAGE FORM, TID (START DATE: 07-JAN-2025, KALCIPOS TO 6 TABLETS, 2  TABLETS 3 TIMES A DAY)
     Dates: start: 20250107, end: 20250112
  8. MAGNESIUM HYDROXIDE [Suspect]
     Active Substance: MAGNESIUM HYDROXIDE
     Indication: Muscle spasms
     Dosage: 1 DOSAGE FORM, BID (1 TABLET IN THE MORNING AND ONE IN THE EVENING)
     Route: 065
  9. MAGNESIUM HYDROXIDE [Suspect]
     Active Substance: MAGNESIUM HYDROXIDE
     Dosage: 2 DOSAGE FORM, BID (2 TABLETS A DAY, ONE IN THE MORNING AND ONE IN EVENING)
     Route: 065
     Dates: end: 20250112
  10. EZETIMIBE [Suspect]
     Active Substance: EZETIMIBE
     Indication: Product used for unknown indication
     Route: 065
  11. EZETIMIBE [Suspect]
     Active Substance: EZETIMIBE
     Route: 065
  12. NITROLINGUAL [Suspect]
     Active Substance: NITROGLYCERIN
     Indication: Chest pain
     Route: 065
  13. NITROLINGUAL [Suspect]
     Active Substance: NITROGLYCERIN
     Route: 065
  14. CANDESARTAN CILEXETIL [Suspect]
     Active Substance: CANDESARTAN CILEXETIL
     Indication: Cardiac failure
     Route: 065
  15. CANDESARTAN CILEXETIL [Suspect]
     Active Substance: CANDESARTAN CILEXETIL
     Route: 065
  16. ATORVASTATIN [Suspect]
     Active Substance: ATORVASTATIN
     Indication: Product used for unknown indication
     Route: 065
  17. FUROSEMIDE [Concomitant]
     Active Substance: FUROSEMIDE
     Indication: Product used for unknown indication
     Route: 065
  18. ACETAMINOPHEN [Concomitant]
     Active Substance: ACETAMINOPHEN
     Indication: Product used for unknown indication
     Route: 065
  19. GABAPENTIN [Concomitant]
     Active Substance: GABAPENTIN
     Indication: Product used for unknown indication
     Route: 065
  20. GABAPENTIN [Concomitant]
     Active Substance: GABAPENTIN
     Route: 065
  21. ZOLPIDEM [Concomitant]
     Active Substance: ZOLPIDEM TARTRATE
     Indication: Insomnia
     Route: 065
  22. LINAGLIPTIN [Concomitant]
     Active Substance: LINAGLIPTIN
     Indication: Diabetes mellitus
     Route: 065
  23. LINAGLIPTIN [Concomitant]
     Active Substance: LINAGLIPTIN
     Route: 065
  24. B12 [Concomitant]
     Indication: Product used for unknown indication
     Route: 065

REACTIONS (10)
  - Hospitalisation [Recovered/Resolved]
  - Mycoplasma infection [Unknown]
  - Pneumonia [Unknown]
  - Palpitations [Not Recovered/Not Resolved]
  - Tremor [Unknown]
  - Diarrhoea [Not Recovered/Not Resolved]
  - Walking aid user [Unknown]
  - Drug ineffective [Recovered/Resolved]
  - Overdose [Recovered/Resolved]
  - Off label use [Recovered/Resolved]

NARRATIVE: CASE EVENT DATE: 20250102
